FAERS Safety Report 6386099-4 (Version None)
Quarter: 2009Q4

REPORT INFORMATION
  Report Type: 
  Country: None (occurrence: None)
  Receive Date: 20091002
  Receipt Date: 20081121
  Transmission Date: 20100525
  Serious: Yes (Other)
  Sender: FDA-Public Use
  Company Number: US-ASTRAZENECA-2008UW26175

PATIENT
  Sex: Female

DRUGS (3)
  1. ARIMIDEX [Suspect]
     Indication: BREAST CANCER FEMALE
     Route: 048
     Dates: start: 20060301
  2. FOSAMAX [Concomitant]
  3. CALCIUM+VITAMIN D [Concomitant]

REACTIONS (3)
  - ALOPECIA [None]
  - ANKLE FRACTURE [None]
  - BONE DENSITY DECREASED [None]
